FAERS Safety Report 9170492 (Version 1)
Quarter: 2013Q1

REPORT INFORMATION
  Report Type: Spontaneous
  Country: US (occurrence: None)
  Receive Date: 20130315
  Receipt Date: 20130315
  Transmission Date: 20140127
  Serious: No
  Sender: FDA-Public Use
  Company Number: None

PATIENT
  Age: 56 Year
  Sex: Male
  Weight: 81.65 kg

DRUGS (1)
  1. CYMBALTA [Suspect]
     Indication: FIBROMYALGIA

REACTIONS (9)
  - Confusional state [None]
  - Withdrawal syndrome [None]
  - Paraesthesia [None]
  - Abdominal pain upper [None]
  - Abnormal dreams [None]
  - Speech disorder [None]
  - Disturbance in attention [None]
  - Economic problem [None]
  - Activities of daily living impaired [None]
